FAERS Safety Report 4975555-9 (Version None)
Quarter: 2006Q2

REPORT INFORMATION
  Report Type: 
  Country: None (occurrence: None)
  Receive Date: 20060410
  Receipt Date: 20060403
  Transmission Date: 20061013
  Serious: Yes (Life-Threatening)
  Sender: FDA-Public Use
  Company Number: 2006-140528-NL

PATIENT
  Age: 34 Year
  Sex: Male

DRUGS (3)
  1. MIRTAZAPINE [Suspect]
     Dosage: 15 MG QD
     Route: 048
  2. METHADONE HCL [Suspect]
     Dosage: DF
  3. FLUNITRAZEPAM [Suspect]
     Indication: SLEEP DISORDER
     Dosage: 2 MG QD
     Route: 048

REACTIONS (1)
  - ANAPHYLACTOID REACTION [None]
